FAERS Safety Report 4270566-3 (Version None)
Quarter: 2004Q1

REPORT INFORMATION
  Report Type: 
  Country: None (occurrence: None)
  Receive Date: 20040113
  Receipt Date: 20040113
  Transmission Date: 20041129
  Serious: Yes (Hospitalization)
  Sender: FDA-Public Use
  Company Number: None

PATIENT
  Age: 37 Year
  Sex: Male
  Weight: 107.9561 kg

DRUGS (2)
  1. TERAZOSIN 10 MG GENEVA [Suspect]
     Indication: HYPERTENSION
     Dosage: 7.5 MG ONCE DAILY ORAL
     Route: 048
     Dates: start: 20030421, end: 20031001
  2. LISINOPRIL [Concomitant]

REACTIONS (1)
  - PRIAPISM [None]
